FAERS Safety Report 5694101-8 (Version None)
Quarter: 2008Q2

REPORT INFORMATION
  Report Type: 
  Country: None (occurrence: None)
  Receive Date: 20080402
  Receipt Date: 20080323
  Transmission Date: 20081010
  Serious: Yes (Hospitalization)
  Sender: FDA-Public Use
  Company Number: 2008SP000696

PATIENT
  Sex: Female

DRUGS (2)
  1. XOPENEX HFA [Suspect]
     Dosage: 90 UG;BID;INHALATION
     Route: 055
     Dates: start: 20070509
  2. IODINE [Concomitant]

REACTIONS (2)
  - BRONCHITIS [None]
  - PALPITATIONS [None]
